FAERS Safety Report 8116250-7 (Version None)
Quarter: 2012Q1

REPORT INFORMATION
  Report Type: 
  Country: None (occurrence: None)
  Receive Date: 20120131
  Receipt Date: 20120126
  Transmission Date: 20120608
  Serious: Yes (Hospitalization)
  Sender: FDA-Public Use
  Company Number: 2012SP004940

PATIENT
  Age: 61 Year
  Sex: Male

DRUGS (3)
  1. PEG-INTRON [Suspect]
     Indication: HEPATITIS C
     Dosage: 150 MCG;QW;SC
     Route: 058
     Dates: start: 20110930
  2. VICTRELIS [Suspect]
     Indication: HEPATITIS C
     Dosage: 2400 MG;QD;PO
     Route: 048
     Dates: start: 20110930
  3. REBETOL [Suspect]
     Indication: HEPATITIS C
     Dosage: 1200 MG;QD;PO
     Route: 048
     Dates: start: 20110930

REACTIONS (4)
  - PNEUMONIA [None]
  - HAEMOGLOBIN DECREASED [None]
  - THROMBOCYTOPENIA [None]
  - AGRANULOCYTOSIS [None]
